FAERS Safety Report 10410427 (Version 1)
Quarter: 2014Q3

REPORT INFORMATION
  Report Type: Spontaneous
  Country: JP (occurrence: JP)
  Receive Date: 20140826
  Receipt Date: 20140826
  Transmission Date: 20150326
  Serious: Yes (Hospitalization)
  Sender: FDA-Public Use
  Company Number: PHHY2014JP105615

PATIENT
  Age: 49 Year
  Sex: Male

DRUGS (9)
  1. PYRAZINAMIDE. [Concomitant]
     Active Substance: PYRAZINAMIDE
     Dosage: 1.5 G/DAY
  2. LEVOFLOXACIN [Concomitant]
     Active Substance: LEVOFLOXACIN
     Indication: TUBERCULOUS PLEURISY
     Dosage: 500 MG/DAY
  3. STREPTOMYCIN [Concomitant]
     Active Substance: STREPTOMYCIN\STREPTOMYCIN SULFATE
     Dosage: 1 G/DAY
  4. ETHAMBUTOL [Concomitant]
     Active Substance: ETHAMBUTOL HYDROCHLORIDE
     Indication: TUBERCULOUS PLEURISY
     Dosage: 750 MG/DAY
  5. RIFAMPICIN [Concomitant]
     Active Substance: RIFAMPIN
     Indication: TUBERCULOUS PLEURISY
     Dosage: 450 MG/DAY
  6. PYRAZINAMIDE. [Concomitant]
     Active Substance: PYRAZINAMIDE
     Indication: TUBERCULOUS PLEURISY
     Dosage: 1.2 G/DAY
  7. ISONIAZID. [Suspect]
     Active Substance: ISONIAZID
     Indication: TUBERCULOUS PLEURISY
     Dosage: 300 MG/DAY
  8. RIFAMPICIN [Concomitant]
     Active Substance: RIFAMPIN
     Dosage: 600 MG/DAY
  9. STREPTOMYCIN [Concomitant]
     Active Substance: STREPTOMYCIN\STREPTOMYCIN SULFATE
     Indication: TUBERCULOUS PLEURISY
     Dosage: 0.75 G 3 TIMES PER WEEK

REACTIONS (7)
  - Inflammation [Recovering/Resolving]
  - Feeling hot [Recovering/Resolving]
  - Tenosynovitis [Recovering/Resolving]
  - Oedema peripheral [Recovering/Resolving]
  - Pain in extremity [Recovering/Resolving]
  - Grip strength decreased [Recovering/Resolving]
  - Hypoaesthesia [Recovering/Resolving]
